FAERS Safety Report 22292322 (Version 1)
Quarter: 2023Q2

REPORT INFORMATION
  Report Type: Spontaneous
  Country: FR (occurrence: FR)
  Receive Date: 20230508
  Receipt Date: 20230508
  Transmission Date: 20230721
  Serious: Yes (Other)
  Sender: FDA-Public Use
  Company Number: FR-DENTSPLY-2023SCDP000139

PATIENT
  Age: 96 Year
  Sex: Male
  Weight: 79 kg

DRUGS (1)
  1. EPINEPHRINE BITARTRATE\LIDOCAINE HYDROCHLORIDE [Suspect]
     Active Substance: EPINEPHRINE BITARTRATE\LIDOCAINE HYDROCHLORIDE
     Indication: Cancer surgery
     Dosage: 2 DOSAGE FORM OF XYLOCAINE 2% (400 MG/20 ML) ADRENALINE, SOLUTION FOR INJECTION IN VIAL
     Route: 023
     Dates: start: 20230303, end: 20230303

REACTIONS (2)
  - Bradyarrhythmia [Recovered/Resolved]
  - Somnolence [Recovered/Resolved]

NARRATIVE: CASE EVENT DATE: 20230304
